FAERS Safety Report 6403682-8 (Version None)
Quarter: 2009Q4

REPORT INFORMATION
  Report Type: 
  Country: None (occurrence: None)
  Receive Date: 20091016
  Receipt Date: 20090622
  Transmission Date: 20100525
  Serious: Yes (Hospitalization, Other)
  Sender: FDA-Public Use
  Company Number: US-JNJFOC-20090603039

PATIENT
  Sex: Female
  Weight: 58.97 kg

DRUGS (13)
  1. DURAGESIC-100 [Suspect]
     Route: 062
  2. DURAGESIC-100 [Suspect]
     Route: 062
  3. DURAGESIC-100 [Suspect]
     Route: 062
  4. DURAGESIC-100 [Suspect]
     Route: 062
  5. DURAGESIC-100 [Suspect]
     Route: 062
  6. DURAGESIC-100 [Suspect]
     Indication: LYME DISEASE
     Route: 062
  7. MONOPRIL [Concomitant]
     Indication: BLOOD PRESSURE
     Route: 048
  8. NORVASC [Concomitant]
     Indication: BLOOD PRESSURE
     Route: 048
  9. KLONOPIN [Concomitant]
     Indication: ANXIETY
     Route: 048
  10. SYNTHROID [Concomitant]
     Indication: THYROID DISORDER
     Route: 048
  11. AMBIEN [Concomitant]
     Indication: SLEEP DISORDER
     Route: 048
  12. LEVOXYL [Concomitant]
     Indication: THYROID DISORDER
     Dosage: HALF A DAY
     Route: 048
  13. ALBUTEROL [Concomitant]
     Indication: ASTHMA
     Route: 065

REACTIONS (12)
  - ASTHENIA [None]
  - ATRIAL FIBRILLATION [None]
  - BALANCE DISORDER [None]
  - CONFUSIONAL STATE [None]
  - DIZZINESS [None]
  - DRUG INEFFECTIVE [None]
  - DYSPNOEA [None]
  - INCORRECT DRUG ADMINISTRATION DURATION [None]
  - LYME DISEASE [None]
  - OVERDOSE [None]
  - PAIN [None]
  - TREATMENT NONCOMPLIANCE [None]
